FAERS Safety Report 14441352 (Version 3)
Quarter: 2018Q1

REPORT INFORMATION
  Report Type: Report from Study
  Country: RO (occurrence: RO)
  Receive Date: 20180125
  Receipt Date: 20180220
  Transmission Date: 20180509
  Serious: Yes (Hospitalization, Congenital Anomaly, Other)
  Sender: FDA-Public Use
  Company Number: RO-VIIV HEALTHCARE LIMITED-RO2018GSK009527

PATIENT
  Age: 36 Week
  Sex: Female
  Weight: 4.5 kg

DRUGS (3)
  1. ABACAVIR SULFATE + LAMIVUDINE [Suspect]
     Active Substance: ABACAVIR SULFATE\LAMIVUDINE
     Indication: HIV INFECTION
     Dosage: UNK
     Route: 064
     Dates: start: 20151001
  2. INSULIN [Concomitant]
     Active Substance: INSULIN NOS
     Indication: PRODUCT USED FOR UNKNOWN INDICATION
     Dosage: UNK
     Route: 065
  3. ISENTRESS [Suspect]
     Active Substance: RALTEGRAVIR POTASSIUM
     Indication: HIV INFECTION
     Dosage: UNK
     Route: 064
     Dates: start: 20151001

REACTIONS (18)
  - Pulmonary artery stenosis [Unknown]
  - Premature baby [Unknown]
  - Oxygen saturation decreased [Unknown]
  - Apgar score abnormal [Unknown]
  - Microcephaly [Unknown]
  - Cerebral calcification [Unknown]
  - Arterial stenosis [Unknown]
  - Hypotonia neonatal [Unknown]
  - Hypoglycaemia neonatal [Unknown]
  - Neonatal hypoxia [Unknown]
  - Resuscitation [Unknown]
  - Atrial septal defect [Unknown]
  - Patent ductus arteriosus [Unknown]
  - Double ureter [Unknown]
  - Lenticulostriatal vasculopathy [Unknown]
  - Foetal exposure during pregnancy [Unknown]
  - Infantile apnoea [Unknown]
  - Breath sounds abnormal [Unknown]

NARRATIVE: CASE EVENT DATE: 2016
